FAERS Safety Report 7298218-6 (Version None)
Quarter: 2011Q1

REPORT INFORMATION
  Report Type: 
  Country: None (occurrence: None)
  Receive Date: 20110217
  Receipt Date: 20110202
  Transmission Date: 20110831
  Serious: Yes (Other)
  Sender: FDA-Public Use
  Company Number: FR-CELGENEUS-056-20785-11020790

PATIENT
  Age: 60 Year
  Sex: Male

DRUGS (2)
  1. THALIDOMIDE [Suspect]
     Route: 048
  2. THALIDOMIDE [Suspect]
     Route: 048

REACTIONS (1)
  - NEPHROPATHY TOXIC [None]
